FAERS Safety Report 11452382 (Version 1)
Quarter: 2015Q3

REPORT INFORMATION
  Report Type: Spontaneous
  Country: US (occurrence: US)
  Receive Date: 20150831
  Receipt Date: 20150831
  Transmission Date: 20151125
  Serious: Yes (Other)
  Sender: FDA-Public Use
  Company Number: US-ELI_LILLY_AND_COMPANY-US200907007111

PATIENT
  Sex: Female

DRUGS (2)
  1. TRAMADOL. [Interacting]
     Active Substance: TRAMADOL
  2. CYMBALTA [Suspect]
     Active Substance: DULOXETINE HYDROCHLORIDE

REACTIONS (3)
  - Potentiating drug interaction [Unknown]
  - Syncope [Unknown]
  - Serotonin syndrome [Unknown]
